FAERS Safety Report 23432750 (Version 1)
Quarter: 2024Q1

REPORT INFORMATION
  Report Type: Other
  Country: None (occurrence: FR)
  Receive Date: 20240123
  Receipt Date: 20240123
  Transmission Date: 20240409
  Serious: Yes (Life-Threatening, Hospitalization, Other)
  Sender: FDA-Public Use
  Company Number: FR-Creekwood Pharmaceuticals LLC-2151838

PATIENT
  Age: 51 Year
  Sex: Female

DRUGS (3)
  1. PREGABALIN [Suspect]
     Active Substance: PREGABALIN
     Indication: Product used for unknown indication
     Route: 048
  2. VENLAFAXINE [Suspect]
     Active Substance: VENLAFAXINE HYDROCHLORIDE
     Route: 048
  3. OXAZEPAM [Suspect]
     Active Substance: OXAZEPAM
     Route: 048

REACTIONS (9)
  - Sinus bradycardia [Recovered/Resolved]
  - Bezoar [Recovered/Resolved]
  - Lactic acidosis [Recovered/Resolved]
  - Cardiotoxicity [Recovered/Resolved]
  - Dizziness [Recovered/Resolved]
  - Toxicity to various agents [Recovered/Resolved]
  - Electrocardiogram QT prolonged [Recovered/Resolved]
  - Coma [Recovered/Resolved]
  - Intentional overdose [Unknown]
